FAERS Safety Report 7861529-7 (Version None)
Quarter: 2011Q4

REPORT INFORMATION
  Report Type: 
  Country: None (occurrence: None)
  Receive Date: 20111027
  Receipt Date: 20111020
  Transmission Date: 20120403
  Serious: Yes (Life-Threatening)
  Sender: FDA-Public Use
  Company Number: GB-AMGEN-GBRSP2011054477

PATIENT
  Age: 81 Year
  Sex: Female

DRUGS (9)
  1. OMEPRAZOLE [Concomitant]
     Dosage: 20 MG, UNK
  2. CYCLIZINE [Concomitant]
     Dosage: 50 MG, PRN
     Route: 048
  3. SODIUM CROMOGLICATE [Concomitant]
     Dosage: 1 DF, BID
     Route: 045
  4. AMLODIPINE [Concomitant]
     Dosage: 5 MG, QD
     Route: 048
  5. DOMPERIDONE [Concomitant]
     Dosage: 10 MG, TID
     Route: 048
  6. OMEPRAZOLE [Concomitant]
     Dosage: 40 MG, QD
     Route: 048
  7. PROLIA [Suspect]
     Indication: OSTEOPOROSIS
     Dosage: 60 MG, UNK
     Dates: start: 20110614
  8. ACETAMINOPHEN [Concomitant]
     Dosage: 20 ML, Q6H
     Route: 048
  9. SYMBICORT [Concomitant]
     Dosage: 2 DF, BID

REACTIONS (4)
  - COLONIC HAEMATOMA [None]
  - GASTROINTESTINAL OBSTRUCTION [None]
  - HERNIA OBSTRUCTIVE [None]
  - HAEMOGLOBIN DECREASED [None]
